FAERS Safety Report 5758288-0 (Version None)
Quarter: 2008Q2

REPORT INFORMATION
  Report Type: 
  Country: None (occurrence: None)
  Receive Date: 20080604
  Receipt Date: 20080530
  Transmission Date: 20081010
  Serious: Yes (Death, Hospitalization, Other)
  Sender: FDA-Public Use
  Company Number: FR-ELI_LILLY_AND_COMPANY-FR200805006094

PATIENT
  Age: 17 Year
  Sex: Female

DRUGS (7)
  1. ZYPREXA [Suspect]
     Indication: DELUSIONAL DISORDER, UNSPECIFIED TYPE
     Dosage: 10 MG, DAILY (1/D)
     Route: 048
     Dates: start: 20051208, end: 20051212
  2. TERCIAN [Concomitant]
     Indication: DELUSION
     Dosage: 210 D/F, DAILY (1/D)
     Route: 048
     Dates: start: 20051206, end: 20051212
  3. DEPAKENE [Concomitant]
     Indication: CONVULSION
     Dosage: 600 MG, DAILY (1/D)
     Route: 048
     Dates: start: 20051214
  4. RIVOTRIL [Concomitant]
     Indication: DELUSION
     Dosage: 60 D/F, DAILY (1/D)
     Route: 048
     Dates: start: 20051207
  5. TRANXENE [Concomitant]
     Dosage: UNK, UNKNOWN
     Route: 042
     Dates: start: 20051213
  6. ATARAX [Concomitant]
     Indication: NEUROLEPTIC MALIGNANT SYNDROME
     Dosage: UNK, UNKNOWN
     Route: 042
     Dates: start: 20051212
  7. ZOVIRAX                                 /GRC/ [Concomitant]
     Dosage: UNK, UNKNOWN
     Route: 042

REACTIONS (7)
  - ARRHYTHMIA [None]
  - CONVULSION [None]
  - ENCEPHALOPATHY [None]
  - LOW CARDIAC OUTPUT SYNDROME [None]
  - MULTI-ORGAN FAILURE [None]
  - NEUROLEPTIC MALIGNANT SYNDROME [None]
  - RESPIRATORY DISTRESS [None]
